FAERS Safety Report 17308250 (Version 1)
Quarter: 2020Q1

REPORT INFORMATION
  Report Type: Spontaneous
  Country: US (occurrence: US)
  Receive Date: 20200122
  Receipt Date: 20200122
  Transmission Date: 20200409
  Serious: No
  Sender: FDA-Public Use
  Company Number: None

PATIENT
  Age: 29 Year
  Sex: Female
  Weight: 58.5 kg

DRUGS (8)
  1. D-HIST [Concomitant]
  2. HIST-DAO [Concomitant]
  3. PREDNISONE STEROID [Suspect]
     Active Substance: PREDNISONE
     Indication: ANAPHYLACTIC REACTION
     Dates: start: 20200122, end: 20200122
  4. VITAMIN B12 [Concomitant]
     Active Substance: CYANOCOBALAMIN
  5. SILVER SPRAY [Concomitant]
  6. BENADRYL [Concomitant]
     Active Substance: DIPHENHYDRAMINE HYDROCHLORIDE
  7. PEPCID [Concomitant]
     Active Substance: FAMOTIDINE
  8. VITAMIN D W/K [Concomitant]

REACTIONS (4)
  - Injection site pain [None]
  - Nerve injury [None]
  - Monoplegia [None]
  - Loss of consciousness [None]

NARRATIVE: CASE EVENT DATE: 20200122
